FAERS Safety Report 17019087 (Version 2)
Quarter: 2019Q4

REPORT INFORMATION
  Report Type: Report from Study
  Country: JP (occurrence: JP)
  Receive Date: 20191112
  Receipt Date: 20191122
  Transmission Date: 20200122
  Serious: Yes (Death, Hospitalization)
  Sender: FDA-Public Use
  Company Number: JP-ROCHE-2465068

PATIENT
  Age: 44 Year
  Sex: Male
  Weight: 60.5 kg

DRUGS (12)
  1. CARBOPLATIN. [Suspect]
     Active Substance: CARBOPLATIN
     Indication: NON-SMALL CELL LUNG CANCER
     Dosage: AUC5
     Route: 041
  2. SENNOSIDE [SENNOSIDE A+B] [Concomitant]
     Active Substance: SENNOSIDES A AND B
     Indication: CONSTIPATION
     Dosage: AT GOING TO BED
     Route: 048
     Dates: start: 20191016, end: 20191030
  3. GLYCEOL [Concomitant]
     Active Substance: GLYCERIN
  4. FRESMIN S [HYDROXOCOBALAMIN] [Concomitant]
     Indication: PROPHYLAXIS
     Route: 030
     Dates: start: 20190624
  5. SODIUM PICOSULFATE [Concomitant]
     Active Substance: SODIUM PICOSULFATE
     Indication: CONSTIPATION
     Dosage: OBSTIPATION AND ONE DROP
     Route: 048
  6. ALIMTA [Suspect]
     Active Substance: PEMETREXED DISODIUM
     Indication: NON-SMALL CELL LUNG CANCER
     Route: 041
     Dates: start: 20190708
  7. LOXOPROFEN NA [Concomitant]
     Active Substance: LOXOPROFEN SODIUM
     Indication: ABDOMINAL PAIN
     Dosage: AT THE PAIN
     Route: 048
  8. DECADRON [Concomitant]
     Active Substance: DEXAMETHASONE
     Indication: PROPHYLAXIS
     Route: 042
     Dates: start: 20190708
  9. ATEZOLIZUMAB. [Suspect]
     Active Substance: ATEZOLIZUMAB
     Indication: NON-SMALL CELL LUNG CANCER
     Route: 041
     Dates: start: 20190708
  10. REBAMIPIDE [Concomitant]
     Active Substance: REBAMIPIDE
     Indication: GASTRITIS PROPHYLAXIS
     Dosage: AT THE PAIN (LOXOPROFEN NA LOCK IS TAKEN)
     Route: 048
  11. ALOXI [Concomitant]
     Active Substance: PALONOSETRON HYDROCHLORIDE
     Indication: PROPHYLAXIS
     Route: 042
     Dates: start: 20190708
  12. MIYA-BM [Concomitant]
     Active Substance: CLOSTRIDIUM BUTYRICUM SPORES STRAIN M-55
     Indication: CONSTIPATION
     Dosage: AFTER EVERY MEAL
     Route: 048
     Dates: start: 20191016, end: 20191030

REACTIONS (2)
  - Cerebrovascular accident [Fatal]
  - Thrombophlebitis migrans [Fatal]

NARRATIVE: CASE EVENT DATE: 20191027
